FAERS Safety Report 6891589-1 (Version None)
Quarter: 2010Q3

REPORT INFORMATION
  Report Type: 
  Country: None (occurrence: None)
  Receive Date: 20100731
  Receipt Date: 20070829
  Transmission Date: 20110219
  Serious: No
  Sender: FDA-Public Use
  Company Number: US-PFIZER INC-2007073227

PATIENT
  Age: 53 Year
  Sex: Male
  Weight: 115.67 kg

DRUGS (3)
  1. CAMPTOSAR [Suspect]
     Indication: RECTAL CANCER
     Dosage: WEEKLY
     Dates: start: 20070101
  2. CAMPTOSAR [Suspect]
     Indication: METASTASES TO LIVER
  3. COMPAZINE [Concomitant]
     Route: 048

REACTIONS (2)
  - NAUSEA [None]
  - VOMITING [None]
